FAERS Safety Report 18627472 (Version 1)
Quarter: 2020Q4

REPORT INFORMATION
  Report Type: Spontaneous
  Country: BE (occurrence: BE)
  Receive Date: 20201217
  Receipt Date: 20201217
  Transmission Date: 20210114
  Serious: Yes (Life-Threatening, Hospitalization, Other)
  Sender: FDA-Public Use
  Company Number: BE-ALVOGEN-2020-ALVOGEN-115513

PATIENT
  Age: 43 Year
  Sex: Male

DRUGS (4)
  1. HALOPERIDOL. [Concomitant]
     Active Substance: HALOPERIDOL
     Indication: SCHIZOPHRENIA
  2. RISPERIDONE. [Concomitant]
     Active Substance: RISPERIDONE
     Indication: SCHIZOPHRENIA
  3. CLORAZEPATE DIPOTASSIUM. [Concomitant]
     Active Substance: CLORAZEPATE DIPOTASSIUM
     Indication: SCHIZOPHRENIA
  4. DISULFIRAM. [Suspect]
     Active Substance: DISULFIRAM
     Indication: SCHIZOPHRENIA
     Dosage: 400 MG/DAY

REACTIONS (9)
  - Peripheral coldness [Recovered/Resolved]
  - Coma [Recovered/Resolved]
  - Renal failure [Not Recovered/Not Resolved]
  - Rhabdomyolysis [Recovered/Resolved]
  - Alcohol intolerance [Recovered/Resolved]
  - Respiratory depression [Recovered/Resolved]
  - Hypotension [Recovered/Resolved]
  - Hypothermia [Recovered/Resolved]
  - Metabolic acidosis [Recovered/Resolved]
